FAERS Safety Report 7814099-3 (Version None)
Quarter: 2011Q4

REPORT INFORMATION
  Report Type: 
  Country: None (occurrence: None)
  Receive Date: 20111014
  Receipt Date: 20111007
  Transmission Date: 20120403
  Serious: Yes (Other)
  Sender: FDA-Public Use
  Company Number: US-JNJFOC-20110805021

PATIENT
  Sex: Male

DRUGS (5)
  1. AMLODIPINE [Concomitant]
     Indication: HYPERTENSION
  2. LEVAQUIN [Suspect]
     Indication: BRONCHITIS
     Route: 048
     Dates: start: 20040201, end: 20090201
  3. PREDNISONE [Suspect]
     Indication: COLITIS
     Route: 065
  4. ACTOS [Concomitant]
     Indication: DIABETES MELLITUS
     Dates: start: 20020101
  5. ZOCOR [Concomitant]
     Indication: HYPERLIPIDAEMIA
     Dates: start: 20060101

REACTIONS (2)
  - JOINT INJURY [None]
  - ROTATOR CUFF SYNDROME [None]
